FAERS Safety Report 20572214 (Version 2)
Quarter: 2022Q1

REPORT INFORMATION
  Report Type: Report from Study
  Country: US (occurrence: None)
  Receive Date: 20220309
  Receipt Date: 20220310
  Transmission Date: 20220423
  Serious: Yes (Hospitalization, Other)
  Sender: FDA-Public Use
  Company Number: US-ROCHE-2982887

PATIENT
  Age: 68 Year
  Sex: Male
  Weight: 95.4 kg

DRUGS (2)
  1. VENETOCLAX [Suspect]
     Active Substance: VENETOCLAX
     Indication: Chronic lymphocytic leukaemia
     Dosage: LAST ADMINISTERED DATE 16-NOV-2021?1-7 CYCLE 3?50 MG PO QD DAYS 8-14, CYCLE 3?100 MG PO QD DAYS 15-2
     Route: 048
     Dates: start: 20211021, end: 20211117
  2. IBRUTINIB [Suspect]
     Active Substance: IBRUTINIB
     Indication: Chronic lymphocytic leukaemia
     Dosage: LAST ADMINISTERED DATE 16-NOV-2021?ON DAYS 1-28, CYCLES 1-19
     Route: 048
     Dates: start: 20211021, end: 20211117

REACTIONS (8)
  - SARS-CoV-2 test positive [Not Recovered/Not Resolved]
  - COVID-19 pneumonia [Recovered/Resolved]
  - Lymphocyte count decreased [Recovered/Resolved]
  - Chills [Not Recovered/Not Resolved]
  - Pyrexia [Recovered/Resolved]
  - Blood albumin decreased [Not Recovered/Not Resolved]
  - Hypoxia [Not Recovered/Not Resolved]
  - Dyspnoea [Not Recovered/Not Resolved]

NARRATIVE: CASE EVENT DATE: 20211117
